FAERS Safety Report 4531185-4 (Version None)
Quarter: 2004Q4

REPORT INFORMATION
  Report Type: 
  Country: None (occurrence: None)
  Receive Date: 20041216
  Receipt Date: 20041210
  Transmission Date: 20050328
  Serious: Yes (Life-Threatening)
  Sender: FDA-Public Use
  Company Number: 200410668BYL

PATIENT
  Age: 72 Year
  Sex: Female

DRUGS (4)
  1. ASPIRIN [Suspect]
     Indication: RAYNAUD'S PHENOMENON
     Dosage: 100 MG, QD, ORAL
     Route: 048
     Dates: start: 20010301, end: 20041208
  2. DIOVAN [Suspect]
     Indication: HYPERTENSION
     Dosage: 80 MG, TOTAL DAILY, ORAL
     Route: 048
     Dates: start: 20041105, end: 20041208
  3. ASPENON (APRINDINE HYDROCHLORIDE) [Suspect]
     Indication: ATRIAL FIBRILLATION
     Dosage: 40 MG, TOTAL DAILY, ORAL
     Route: 048
     Dates: start: 20041105, end: 20041208
  4. ALCENOL (ATENOLOL) [Suspect]
     Indication: HYPERTENSION
     Dosage: 25 MG, TOTAL DAILY, ORAL
     Route: 048
     Dates: start: 20041105, end: 20041208

REACTIONS (4)
  - ATRIAL FIBRILLATION [None]
  - CHOLESTASIS [None]
  - HYPERTENSION [None]
  - LIVER DISORDER [None]
